FAERS Safety Report 14135913 (Version 2)
Quarter: 2018Q1

REPORT INFORMATION
  Report Type: Report from Study
  Country: US (occurrence: US)
  Receive Date: 20171026
  Receipt Date: 20180123
  Transmission Date: 20180508
  Serious: No
  Sender: FDA-Public Use
  Company Number: US-AMGEN-USASL2017137716

PATIENT
  Age: 80 Year
  Sex: Female

DRUGS (1)
  1. REPATHA [Suspect]
     Active Substance: EVOLOCUMAB
     Indication: BLOOD CHOLESTEROL INCREASED
     Dosage: 140 MG, Q2MO
     Route: 065

REACTIONS (10)
  - Fall [Unknown]
  - Neuralgia [Unknown]
  - Arthritis [Recovering/Resolving]
  - Arthralgia [Unknown]
  - Rash [Unknown]
  - Pain [Not Recovered/Not Resolved]
  - Arthropathy [Not Recovered/Not Resolved]
  - Nausea [Unknown]
  - Gastric disorder [Unknown]
  - Abdominal pain upper [Unknown]
